FAERS Safety Report 8823508 (Version 2)
Quarter: 2013Q3

REPORT INFORMATION
  Report Type: Spontaneous
  Country: US (occurrence: US)
  Receive Date: 20121003
  Receipt Date: 20130923
  Transmission Date: 20140515
  Serious: Yes (Death)
  Sender: FDA-Public Use
  Company Number: US-009507513-1209USA009957

PATIENT
  Age: 47 Year
  Sex: Female

DRUGS (8)
  1. PEGINTRON [Suspect]
     Indication: HEPATITIS C
     Dosage: REDIPEN, 50 MCG PER 0.5 ML, FORM-STR
     Dates: start: 20120913
  2. PEGINTRON [Suspect]
     Dosage: REDIPEN; 50 MCG/ 0.5 ML
     Dates: start: 20120920
  3. REBETOL [Suspect]
     Indication: HEPATITIS C
     Dosage: 400 MG, QD
     Dates: start: 20120913
  4. LANTUS [Concomitant]
     Dosage: UNK
  5. NOVOLOG [Concomitant]
  6. LEVOTHYROXINE SODIUM [Concomitant]
  7. LISINOPRIL [Concomitant]
  8. ULTRAM [Concomitant]
     Dosage: UNK

REACTIONS (1)
  - Cardiac death [Fatal]
